FAERS Safety Report 21801291 (Version 1)
Quarter: 2022Q4

REPORT INFORMATION
  Report Type: Report from Study
  Country: US (occurrence: US)
  Receive Date: 20221230
  Receipt Date: 20221230
  Transmission Date: 20230112
  Serious: No
  Sender: FDA-Public Use
  Company Number: US-ACORDA-ACO_171958_2022

PATIENT
  Sex: Male

DRUGS (3)
  1. INBRIJA [Suspect]
     Active Substance: LEVODOPA
     Indication: Parkinson^s disease
     Dosage: 84 MILLIGRAM (2 CAPSULES), PRN, (NOT TO EXCEED 5 DOSES IN 1 DAY)
     Dates: start: 20210622
  2. INBRIJA [Suspect]
     Active Substance: LEVODOPA
     Indication: On and off phenomenon
  3. CLONAZEPAM [Concomitant]
     Active Substance: CLONAZEPAM
     Indication: Product used for unknown indication
     Dosage: 0.5 MILLIGRAM
     Route: 065

REACTIONS (4)
  - Parkinson^s disease [Not Recovered/Not Resolved]
  - Disease progression [Not Recovered/Not Resolved]
  - Device defective [Unknown]
  - Device delivery system issue [Unknown]
